FAERS Safety Report 12887339 (Version 1)
Quarter: 2016Q4

REPORT INFORMATION
  Report Type: Spontaneous
  Country: US (occurrence: US)
  Receive Date: 20161026
  Receipt Date: 20161026
  Transmission Date: 20170207
  Serious: No
  Sender: FDA-Public Use
  Company Number: US-009507513-1609USA014694

PATIENT
  Sex: Female

DRUGS (2)
  1. NEXPLANON [Suspect]
     Active Substance: ETONOGESTREL
     Indication: CONTRACEPTION
     Dosage: THE 2ND NEXPLANON ROD
     Route: 059
     Dates: start: 201609, end: 201609
  2. NEXPLANON [Suspect]
     Active Substance: ETONOGESTREL
     Dosage: NEXPLANON ROD, REMOVED AFTER 3 YEARS OF USE (ON SCHEDULE)
     Route: 059
     Dates: start: 201309, end: 201609

REACTIONS (3)
  - Adverse event [Unknown]
  - Discomfort [Unknown]
  - Pain in extremity [Unknown]

NARRATIVE: CASE EVENT DATE: 201609
